FAERS Safety Report 13439967 (Version 2)
Quarter: 2017Q3

REPORT INFORMATION
  Report Type: Spontaneous
  Country: BR (occurrence: BR)
  Receive Date: 20170413
  Receipt Date: 20170908
  Transmission Date: 20171127
  Serious: Yes (Hospitalization, Other)
  Sender: FDA-Public Use
  Company Number: BR-ABBVIE-17P-020-1942969-00

PATIENT
  Sex: Female
  Weight: 17 kg

DRUGS (1)
  1. DEPAKENE [Suspect]
     Active Substance: VALPROIC ACID
     Indication: EPILEPSY
     Route: 065

REACTIONS (4)
  - Tendon disorder [Recovering/Resolving]
  - Joint dislocation [Not Recovered/Not Resolved]
  - Bone disorder [Unknown]
  - Drug administered to patient of inappropriate age [Unknown]
